FAERS Safety Report 7929932-4 (Version None)
Quarter: 2011Q4

REPORT INFORMATION
  Report Type: 
  Country: None (occurrence: None)
  Receive Date: 20111108
  Receipt Date: 20110214
  Transmission Date: 20120403
  Serious: Yes (Disabling)
  Sender: FDA-Public Use
  Company Number: PHHY2011US13212

PATIENT
  Age: 41 Year
  Sex: Male
  Weight: 62 kg

DRUGS (6)
  1. CRESTOR [Concomitant]
  2. GLEEVEC [Concomitant]
  3. TRICOR [Concomitant]
  4. ASPIRIN [Concomitant]
  5. ZOMETA [Suspect]
     Indication: MASTOCYTOSIS
     Dosage: 4 MG, INTRAVENOUS
     Route: 042
     Dates: start: 20110117, end: 20110117
  6. ZOMETA [Suspect]
     Indication: MASTOCYTOSIS
     Dosage: 4 MG, INTRAVENOUS
     Route: 042
     Dates: start: 20101213, end: 20101213

REACTIONS (1)
  - DIARRHOEA [None]
